FAERS Safety Report 10650125 (Version 3)
Quarter: 2014Q4

REPORT INFORMATION
  Report Type: Spontaneous
  Country: US (occurrence: US)
  Receive Date: 20141212
  Receipt Date: 20141230
  Transmission Date: 20150529
  Serious: No
  Sender: FDA-Public Use
  Company Number: US-GLAXOSMITHKLINE-A0979146A

PATIENT
  Age: 85 Year
  Sex: Female

DRUGS (8)
  1. ADVAIR DISKUS [Suspect]
     Active Substance: FLUTICASONE PROPIONATE\SALMETEROL XINAFOATE
     Indication: EMPHYSEMA
  2. CONSTIPATION DRUG [Concomitant]
  3. SLEEP TABLETS (NOS) [Concomitant]
  4. ADVAIR DISKUS [Suspect]
     Active Substance: FLUTICASONE PROPIONATE\SALMETEROL XINAFOATE
     Indication: EMPHYSEMA
  5. BLOOD PRESSURE MED [Concomitant]
  6. ADVAIR DISKUS [Suspect]
     Active Substance: FLUTICASONE PROPIONATE\SALMETEROL XINAFOATE
     Indication: CHRONIC OBSTRUCTIVE PULMONARY DISEASE
     Dosage: 1 PUFF(S), QD
  7. ADVAIR DISKUS [Suspect]
     Active Substance: FLUTICASONE PROPIONATE\SALMETEROL XINAFOATE
     Indication: CHRONIC OBSTRUCTIVE PULMONARY DISEASE
     Dosage: 1 PUFF(S), QD
     Dates: start: 201406
  8. VITAMIN D [Concomitant]
     Active Substance: CHOLECALCIFEROL

REACTIONS (10)
  - Rash [Not Recovered/Not Resolved]
  - Drug ineffective [Recovering/Resolving]
  - Lip swelling [Unknown]
  - Chapped lips [Unknown]
  - Lip pain [Unknown]
  - Product quality issue [Unknown]
  - Drug administration error [Unknown]
  - Dyspnoea [Recovering/Resolving]
  - Lip dry [Unknown]
  - Cheilitis [Unknown]

NARRATIVE: CASE EVENT DATE: 201406
